FAERS Safety Report 8180638-9 (Version None)
Quarter: 2012Q1

REPORT INFORMATION
  Report Type: 
  Country: None (occurrence: None)
  Receive Date: 20120302
  Receipt Date: 20120224
  Transmission Date: 20120608
  Serious: Yes (Other)
  Sender: FDA-Public Use
  Company Number: DE-PFIZER INC-2012013890

PATIENT
  Age: 75 Year
  Sex: Male
  Weight: 78.6 kg

DRUGS (22)
  1. RAMIPRIL [Concomitant]
     Indication: HYPERTENSION
     Dosage: 5 MG, 2X/DAY
  2. LOPERAMIDE [Concomitant]
     Indication: DIARRHOEA
     Dosage: UNK
  3. PENTAERYTHRITOL TETRANITRATE [Concomitant]
     Dosage: ONCE DAILY
  4. FINASTERIDE [Concomitant]
     Dosage: 5 MG, UNK
  5. OMEPRAZOLE [Concomitant]
     Indication: GASTROOESOPHAGEAL REFLUX DISEASE
     Dosage: 20 MG, 2X/DAY
  6. PREDNISOLONE [Concomitant]
     Indication: COLONIC STENOSIS
     Dosage: 32.5 MG, UNK
  7. LOMOTIL [Concomitant]
     Indication: DIARRHOEA
     Dosage: UNK
  8. DICLOFENAC [Concomitant]
     Dosage: UNK
  9. TOVIAZ [Suspect]
     Indication: CROHN'S DISEASE
  10. CALCIUM WITH VITAMIN D [Concomitant]
     Indication: OSTEOPOROSIS
     Dosage: UNK
  11. CRATAEGUS [Concomitant]
     Dosage: 450 MG, 2X/DAY
  12. CARVEDILOL [Concomitant]
     Indication: HYPERTENSION
     Dosage: 6.25 MG, 4X/DAY
  13. LERCANIDIPINE [Concomitant]
     Dosage: UNK
  14. KOMPENSAN [Concomitant]
     Dosage: AS NEEDED
  15. PANTHENOL [Concomitant]
     Indication: GASTROOESOPHAGEAL REFLUX DISEASE
     Dosage: UNK
  16. TOVIAZ [Suspect]
     Indication: URINARY TRACT PAIN
     Dosage: 4 MG, DAILY
     Dates: start: 20111208, end: 20120111
  17. PREDNISOLONE [Concomitant]
     Indication: FISTULA
  18. TAMSULOSIN [Concomitant]
     Dosage: 0.4 MG, 2X/DAY
  19. MESALAMINE [Concomitant]
     Dosage: 2 G, 3X/DAY
  20. AGIOCUR [Concomitant]
     Dosage: UNK
  21. TIM-OPHTAL [Concomitant]
     Dosage: EVERY 12 HOURS
  22. MOXONIDINE [Concomitant]
     Dosage: 4 MG, 2X/DAY

REACTIONS (2)
  - GASTROOESOPHAGEAL REFLUX DISEASE [None]
  - INTRAOCULAR PRESSURE INCREASED [None]
